FAERS Safety Report 9136267 (Version 1)
Quarter: 2013Q1

REPORT INFORMATION
  Report Type: Spontaneous
  Country: US (occurrence: US)
  Receive Date: 20130304
  Receipt Date: 20130304
  Transmission Date: 20140127
  Serious: No
  Sender: FDA-Public Use
  Company Number: US-ABBOTT-12P-163-0931783-00

PATIENT
  Age: 45 Year
  Sex: Female

DRUGS (1)
  1. ANDROGEL 1% [Suspect]
     Indication: MENOPAUSE
     Dosage: HALF A PUMP
     Dates: start: 201101

REACTIONS (3)
  - Off label use [Not Recovered/Not Resolved]
  - Drug ineffective [Not Recovered/Not Resolved]
  - Crying [Not Recovered/Not Resolved]
